FAERS Safety Report 6756829-8 (Version None)
Quarter: 2010Q2

REPORT INFORMATION
  Report Type: 
  Country: None (occurrence: None)
  Receive Date: 20100604
  Receipt Date: 20100522
  Transmission Date: 20101027
  Serious: Yes (Other)
  Sender: FDA-Public Use
  Company Number: PHFR2010GB00756

PATIENT
  Sex: Female

DRUGS (2)
  1. TEGRETOL [Suspect]
     Dosage: UNK
     Route: 048
     Dates: start: 20100520
  2. QUETIAPINE [Concomitant]
     Indication: AFFECTIVE DISORDER

REACTIONS (5)
  - DECREASED APPETITE [None]
  - FATIGUE [None]
  - HAEMATEMESIS [None]
  - MALAISE [None]
  - VOMITING [None]
